FAERS Safety Report 4358212-1 (Version None)
Quarter: 2004Q2

REPORT INFORMATION
  Report Type: 
  Country: None (occurrence: None)
  Receive Date: 20040511
  Receipt Date: 20040427
  Transmission Date: 20050107
  Serious: Yes (Death)
  Sender: FDA-Public Use
  Company Number: 2004028463

PATIENT
  Sex: Female

DRUGS (3)
  1. GEODON [Suspect]
     Indication: PSYCHOTIC DISORDER
     Dosage: ( MULTIPLE TIMES)INTRAMUSCULAR
     Route: 030
  2. LORAZEPAM [Suspect]
     Indication: PSYCHOTIC DISORDER
     Dosage: (MULTIPLE TIMES), INTRAMUSCULAR
     Route: 030
  3. ALL OTHER THERAPEUTIC PRODUCT (ALL OTHER THERAPEUTIC  PRODUCTS) [Suspect]
     Indication: ILL-DEFINED DISORDER

REACTIONS (2)
  - DRUG INEFFECTIVE [None]
  - SUDDEN DEATH [None]
